FAERS Safety Report 24272680 (Version 2)
Quarter: 2025Q2

REPORT INFORMATION
  Report Type: Spontaneous
  Country: US (occurrence: US)
  Receive Date: 20240902
  Receipt Date: 20250421
  Transmission Date: 20250716
  Serious: No
  Sender: UCB
  Company Number: US-UCBSA-2024029901

PATIENT
  Sex: Male
  Weight: 240 kg

DRUGS (1)
  1. NEUPRO [Suspect]
     Active Substance: ROTIGOTINE
     Indication: Restless legs syndrome
     Dosage: 3 MILLIGRAM, WEEKLY (QW)
     Route: 062

REACTIONS (2)
  - Product adhesion issue [Unknown]
  - Therapy interrupted [Unknown]
